FAERS Safety Report 9313542 (Version 1)
Quarter: 2013Q2

REPORT INFORMATION
  Report Type: Spontaneous
  Country: NL (occurrence: NL)
  Receive Date: 20130528
  Receipt Date: 20130528
  Transmission Date: 20140414
  Serious: Yes (Death, Other)
  Sender: FDA-Public Use
  Company Number: PHHY2013NL051114

PATIENT
  Age: 72 Year
  Sex: Male

DRUGS (2)
  1. PREDNISONE [Suspect]
     Indication: SARCOIDOSIS
  2. AZATHIOPRINE [Suspect]
     Indication: SARCOIDOSIS

REACTIONS (2)
  - Mycobacterial infection [Fatal]
  - Multi-organ failure [Fatal]
